FAERS Safety Report 6533531-9 (Version None)
Quarter: 2010Q1

REPORT INFORMATION
  Report Type: 
  Country: None (occurrence: None)
  Receive Date: 20100111
  Receipt Date: 20100107
  Transmission Date: 20100710
  Serious: Yes (Life-Threatening)
  Sender: FDA-Public Use
  Company Number: US-JNJFOC-20100101993

PATIENT
  Age: 32 Year
  Sex: Female

DRUGS (5)
  1. ULTRAM [Suspect]
     Indication: DRUG USE FOR UNKNOWN INDICATION
     Route: 048
  2. TIZANIDINE HCL [Suspect]
     Indication: DRUG USE FOR UNKNOWN INDICATION
     Route: 065
  3. GABAPENTIN [Suspect]
     Indication: DRUG USE FOR UNKNOWN INDICATION
     Route: 065
  4. MUSCLE RELAXANTS (NOS) [Suspect]
     Indication: DRUG USE FOR UNKNOWN INDICATION
     Route: 065
  5. ANTICONVULSANT [Concomitant]

REACTIONS (6)
  - ELECTROCARDIOGRAM QT PROLONGED [None]
  - GRAND MAL CONVULSION [None]
  - MULTIPLE DRUG OVERDOSE [None]
  - SUICIDE ATTEMPT [None]
  - SUPRAVENTRICULAR EXTRASYSTOLES [None]
  - TACHYCARDIA [None]
